FAERS Safety Report 7377579-3 (Version None)
Quarter: 2011Q1

REPORT INFORMATION
  Report Type: 
  Country: None (occurrence: None)
  Receive Date: 20110328
  Receipt Date: 20110322
  Transmission Date: 20110831
  Serious: Yes (Death, Hospitalization)
  Sender: FDA-Public Use
  Company Number: US-CELGENEUS-163-21880-10091799

PATIENT
  Sex: Female

DRUGS (18)
  1. ADVAIR DISKUS 100/50 [Concomitant]
     Dosage: 250/50 MCG
     Route: 055
  2. PRILOSEC [Concomitant]
     Dosage: 20 MILLIGRAM
     Route: 048
  3. PERCOCET [Concomitant]
     Dosage: 10-325MG
     Route: 065
  4. SOMA [Concomitant]
     Dosage: 350 MILLIGRAM
     Route: 065
  5. DEXAMETHASONE [Concomitant]
     Dosage: 4 MILLIGRAM
     Route: 065
  6. KLOR-CON [Concomitant]
     Dosage: 20 MILLIEQUIVALENTS
     Route: 048
  7. PROMETHAZINE [Concomitant]
     Dosage: 25 MILLIGRAM
     Route: 065
  8. REVLIMID [Suspect]
     Indication: MULTIPLE MYELOMA
     Dosage: 10 MILLIGRAM
     Route: 048
     Dates: start: 20091016, end: 20100817
  9. VENTOLIN HFA [Concomitant]
     Dosage: 90 MICROGRAM
     Route: 055
  10. DILAUDID [Concomitant]
     Dosage: 8 MILLIGRAM
     Route: 065
  11. MS CONTIN [Concomitant]
     Dosage: 60 MILLIGRAM
     Route: 065
  12. OXYCODONE [Concomitant]
     Dosage: 20 MILLIGRAM
     Route: 065
  13. BACITRACIN [Concomitant]
     Dosage: 500 UNIT/G
     Route: 065
  14. LIDOCAINE HCL VISCOUS [Concomitant]
     Dosage: 2 PERCENT
     Route: 065
  15. TRIAMCINOLONE ACETONIDE [Concomitant]
     Dosage: .1 PERCENT
     Route: 061
  16. EFFEXOR XR [Concomitant]
     Dosage: 75 MILLIGRAM
     Route: 048
  17. XANAX [Concomitant]
     Dosage: .5 MILLIGRAM
     Route: 048
  18. XYLOCAINE [Concomitant]
     Indication: PAIN
     Dosage: 2 PERCENT
     Route: 065

REACTIONS (6)
  - PNEUMONIA ASPIRATION [None]
  - SUPRAVENTRICULAR TACHYCARDIA [None]
  - RESPIRATORY FAILURE [None]
  - CHRONIC OBSTRUCTIVE PULMONARY DISEASE [None]
  - SEPTIC SHOCK [None]
  - GASTROOESOPHAGEAL REFLUX DISEASE [None]
